FAERS Safety Report 8118903-3 (Version None)
Quarter: 2012Q1

REPORT INFORMATION
  Report Type: 
  Country: None (occurrence: None)
  Receive Date: 20120207
  Receipt Date: 20120126
  Transmission Date: 20120608
  Serious: Yes (Hospitalization)
  Sender: FDA-Public Use
  Company Number: US-JNJFOC-20111204381

PATIENT
  Age: 18 Year
  Sex: Female
  Weight: 50.8 kg

DRUGS (1)
  1. EXTRA STRENGTH TYLENOL PM [Suspect]
     Indication: PRODUCT USED FOR UNKNOWN INDICATION
     Route: 048
     Dates: start: 20111130, end: 20111130

REACTIONS (5)
  - INTENTIONAL OVERDOSE [None]
  - CONFUSIONAL STATE [None]
  - AGITATION [None]
  - SELF INJURIOUS BEHAVIOUR [None]
  - TACHYCARDIA [None]
